FAERS Safety Report 10206876 (Version 3)
Quarter: 2014Q2

REPORT INFORMATION
  Report Type: Report from Study
  Country: GB (occurrence: GB)
  Receive Date: 20140530
  Receipt Date: 20140615
  Transmission Date: 20141212
  Serious: No
  Sender: FDA-Public Use
  Company Number: PHHY2013GB099482

PATIENT
  Sex: Female

DRUGS (1)
  1. GILENYA [Suspect]
     Indication: MULTIPLE SCLEROSIS

REACTIONS (6)
  - Lymphocyte count decreased [Unknown]
  - Anaemia [Unknown]
  - Haematocrit decreased [Unknown]
  - Haemoglobin decreased [Unknown]
  - Urinary tract infection [Recovered/Resolved]
  - Constipation [Not Recovered/Not Resolved]
